FAERS Safety Report 4742138-5 (Version None)
Quarter: 2005Q3

REPORT INFORMATION
  Report Type: 
  Country: None (occurrence: None)
  Receive Date: 20050808
  Receipt Date: 20050726
  Transmission Date: 20060218
  Serious: Yes (Hospitalization, Other)
  Sender: FDA-Public Use
  Company Number: 2005097161

PATIENT
  Sex: Male

DRUGS (2)
  1. BENADRYL [Suspect]
     Indication: URTICARIA
     Dosage: 5 MG/KG, INTRAVENOUS
     Route: 042
     Dates: start: 20041102, end: 20041102
  2. ALL OTHER THERAPEUTIC PRODUCTS [Concomitant]

REACTIONS (2)
  - DRUG HYPERSENSITIVITY [None]
  - HALLUCINATION [None]
